FAERS Safety Report 5306229-2 (Version None)
Quarter: 2007Q2

REPORT INFORMATION
  Report Type: 
  Country: None (occurrence: None)
  Receive Date: 20070424
  Receipt Date: 20070411
  Transmission Date: 20071010
  Serious: Yes (Other)
  Sender: FDA-Public Use
  Company Number: PL-ROCHE-493506

PATIENT
  Age: 15 Year
  Sex: Female

DRUGS (5)
  1. RIBAVIRIN [Suspect]
     Route: 065
  2. RIBAVIRIN [Suspect]
     Route: 065
  3. RIBAVIRIN [Suspect]
     Route: 065
  4. PEG-INTERFERON ALPHA 2B [Suspect]
     Route: 065
  5. CYCLOSPORINE [Concomitant]

REACTIONS (2)
  - ANAEMIA [None]
  - TRANSPLANT REJECTION [None]
